FAERS Safety Report 12749562 (Version 6)
Quarter: 2019Q2

REPORT INFORMATION
  Report Type: Report from Study
  Country: US (occurrence: US)
  Receive Date: 20160915
  Receipt Date: 20190626
  Transmission Date: 20190711
  Serious: Yes (Hospitalization, Other)
  Sender: FDA-Public Use
  Company Number: US-ASTELLAS-2016US016370

PATIENT
  Age: 78 Year
  Sex: Male

DRUGS (2)
  1. ENZALUTAMIDE [Suspect]
     Active Substance: ENZALUTAMIDE
     Indication: PROSTATE CANCER
     Route: 048
     Dates: start: 201512
  2. MORPHINE [Suspect]
     Active Substance: MORPHINE
     Indication: HERPES ZOSTER
     Dosage: UNK, UNKNOWN FREQ.
     Route: 065

REACTIONS (15)
  - Pneumonia [Recovered/Resolved]
  - Feeling abnormal [Unknown]
  - Rash [Unknown]
  - Nipple pain [Unknown]
  - Hip fracture [Recovering/Resolving]
  - Asthenia [Unknown]
  - Urinary tract infection bacterial [Recovered/Resolved]
  - Breast pain [Unknown]
  - Blood calcium decreased [Not Recovered/Not Resolved]
  - Dry mouth [Not Recovered/Not Resolved]
  - Decreased appetite [Unknown]
  - Spinal pain [Unknown]
  - Headache [Not Recovered/Not Resolved]
  - Herpes zoster [Not Recovered/Not Resolved]
  - Fatigue [Unknown]

NARRATIVE: CASE EVENT DATE: 201512
